FAERS Safety Report 9226496 (Version 3)
Quarter: 2013Q2

REPORT INFORMATION
  Report Type: Spontaneous
  Country: JP (occurrence: JP)
  Receive Date: 20130412
  Receipt Date: 20130604
  Transmission Date: 20140414
  Serious: Yes (Other)
  Sender: FDA-Public Use
  Company Number: JP-AMGEN-JPNSP2013024823

PATIENT
  Age: 76 Year
  Sex: Female

DRUGS (7)
  1. ENBREL [Suspect]
     Indication: RHEUMATOID ARTHRITIS
     Dosage: 25 MG, WEEKLY
     Route: 058
     Dates: start: 20120316, end: 20130215
  2. ENBREL [Suspect]
     Dosage: 25 MG, WEEKLY
     Route: 058
     Dates: start: 20130322
  3. PREDNISOLONE [Concomitant]
     Indication: RHEUMATOID ARTHRITIS
     Dosage: 2 MG, 1X/DAY
     Route: 048
     Dates: start: 20120217
  4. RABEPRAZOLE SODIUM [Concomitant]
     Dosage: 10 MG, 1X/DAY
     Route: 048
     Dates: start: 20120817
  5. BAKTAR [Concomitant]
     Dosage: 1 TABLET WEEKLY
     Route: 048
     Dates: start: 20120817
  6. LENDORMIN [Concomitant]
     Dosage: 0.25 MG, 1X/DAY
     Route: 048
     Dates: start: 20121026
  7. CELECOX [Concomitant]
     Dosage: UNK, AS NEEDED
     Route: 048
     Dates: start: 20121228

REACTIONS (4)
  - Head injury [Unknown]
  - Subdural haematoma [Recovering/Resolving]
  - Subdural hygroma [Unknown]
  - Fall [Unknown]
